FAERS Safety Report 4761569-0 (Version None)
Quarter: 2005Q3

REPORT INFORMATION
  Report Type: 
  Country: None (occurrence: None)
  Receive Date: 20050906
  Receipt Date: 20050131
  Transmission Date: 20060218
  Serious: Yes (Hospitalization, Disabling)
  Sender: FDA-Public Use
  Company Number: 2005UW01685

PATIENT
  Age: 29599 Day
  Sex: Female
  Weight: 75 kg

DRUGS (8)
  1. XYLOCAINE W/ EPINEPHRINE [Suspect]
     Indication: NERVE BLOCK
     Dosage: 15 CC
     Route: 053
     Dates: start: 20050125, end: 20050125
  2. XYLOCAINE W/ EPINEPHRINE [Suspect]
     Indication: SHOULDER OPERATION
     Dosage: 15 CC
     Route: 053
     Dates: start: 20050125, end: 20050125
  3. XYLOCAINE W/ EPINEPHRINE [Suspect]
     Indication: ARTHROPATHY
     Dosage: 15 CC
     Route: 053
     Dates: start: 20050125, end: 20050125
  4. NAROPIN [Suspect]
     Indication: NERVE BLOCK
     Dosage: 15 CC
     Route: 053
     Dates: start: 20050125, end: 20050125
  5. NAROPIN [Suspect]
     Indication: SHOULDER OPERATION
     Dosage: 15 CC
     Route: 053
     Dates: start: 20050125, end: 20050125
  6. NAROPIN [Suspect]
     Indication: ARTHROPATHY
     Dosage: 15 CC
     Route: 053
     Dates: start: 20050125, end: 20050125
  7. ANTIHYPERTENSIVE [Concomitant]
  8. PROPOFOL [Concomitant]
     Dates: start: 20050125, end: 20050125

REACTIONS (5)
  - ELECTROMYOGRAM ABNORMAL [None]
  - MONOPLEGIA [None]
  - MOTOR DYSFUNCTION [None]
  - NEUROPATHY [None]
  - PARAESTHESIA [None]
